FAERS Safety Report 8121673-6 (Version None)
Quarter: 2012Q1

REPORT INFORMATION
  Report Type: 
  Country: None (occurrence: None)
  Receive Date: 20120208
  Receipt Date: 20120203
  Transmission Date: 20120608
  Serious: Yes (Other)
  Sender: FDA-Public Use
  Company Number: FR-PFIZER INC-2012031476

PATIENT
  Age: 49 Year
  Sex: Male

DRUGS (2)
  1. ATORVASTATIN [Suspect]
     Dosage: 40 MG, UNK
     Dates: start: 20110401
  2. ATORVASTATIN [Suspect]
     Dosage: 80 MG, UNK
     Dates: start: 20101101, end: 20110401

REACTIONS (2)
  - TENDON RUPTURE [None]
  - ARTHRALGIA [None]
